FAERS Safety Report 16004338 (Version 1)
Quarter: 2019Q1

REPORT INFORMATION
  Report Type: Spontaneous
  Country: US (occurrence: US)
  Receive Date: 20190225
  Receipt Date: 20190225
  Transmission Date: 20190418
  Serious: No
  Sender: FDA-Public Use
  Company Number: None

PATIENT
  Age: 50 Year
  Sex: Female
  Weight: 46.35 kg

DRUGS (12)
  1. AMOXICILLIN 500MG CAPSULES [Suspect]
     Active Substance: AMOXICILLIN
     Indication: ANTIBIOTIC THERAPY
     Dosage: ?          QUANTITY:21 CAPSULE(S);?
     Route: 048
  2. METHYL B [Concomitant]
  3. VITAMIN C [Concomitant]
     Active Substance: ASCORBIC ACID
  4. BIOCIDIN [Concomitant]
  5. GLUTATHIONE [Concomitant]
     Active Substance: GLUTATHIONE
  6. REACTED IRON [Concomitant]
  7. ADRENEVE [Concomitant]
  8. MAG GLYCINATE [Concomitant]
  9. D3+K2 [Concomitant]
  10. THYROSOL [Concomitant]
  11. CHASTETREE + CALCIUM D [Concomitant]
  12. GLYCINATE [Concomitant]

REACTIONS (3)
  - Throat irritation [None]
  - Throat tightness [None]
  - Rash [None]

NARRATIVE: CASE EVENT DATE: 20190223
